FAERS Safety Report 17938683 (Version 1)
Quarter: 2020Q2

REPORT INFORMATION
  Report Type: Spontaneous
  Country: DE (occurrence: DE)
  Receive Date: 20200625
  Receipt Date: 20200625
  Transmission Date: 20200714
  Serious: Yes (Life-Threatening, Hospitalization)
  Sender: FDA-Public Use
  Company Number: DE-TEVA-2020-DE-1790631

PATIENT
  Age: 75 Year
  Sex: Male
  Weight: 80 kg

DRUGS (14)
  1. SPIRONOLACTON [Suspect]
     Active Substance: SPIRONOLACTONE
     Dosage: 50 MILLIGRAM DAILY; 1-0-0-0
     Route: 048
  2. BICALUTAMID [Interacting]
     Active Substance: BICALUTAMIDE
     Dosage: 150 MILLIGRAM DAILY; 1-0-0-0
     Route: 048
  3. ACETYLSALICYLSAEURE [Concomitant]
     Active Substance: ASPIRIN
     Dosage: 100 MILLIGRAM DAILY; 0-1-0-0
     Route: 048
  4. BISOPROLOL [Concomitant]
     Active Substance: BISOPROLOL
     Dosage: 5 MILLIGRAM DAILY; 1-0-0-0
     Route: 048
  5. FERRO SANOL DUODENAL MITE 50MG MAGENSAFTRESISTENTE HARTKAPSELN [Concomitant]
     Dosage: 50 MILLIGRAM DAILY; 50 MG, 1-0-0-0,
     Route: 048
  6. RIVAROXABAN [Concomitant]
     Active Substance: RIVAROXABAN
     Dosage: 15 MILLIGRAM DAILY; 1-0-0-0
     Route: 048
  7. TILIDIN/NALOXON [Concomitant]
     Active Substance: NALOXONE HYDROCHLORIDE\TILIDINE HYDROCHLORIDE
     Dosage: 2 DOSAGE FORMS DAILY; 4|50 MG, 1-0-1-0,
     Route: 048
  8. METAMIZOL [Interacting]
     Active Substance: METAMIZOLE SODIUM
     Dosage: 2000 MILLIGRAM DAILY; 1-1-1-1
     Route: 048
  9. RAMIPRIL. [Interacting]
     Active Substance: RAMIPRIL
     Dosage: 5 MILLIGRAM DAILY; 0-0-1-0
     Route: 048
  10. FUROSEMID [Interacting]
     Active Substance: FUROSEMIDE
     Dosage: 20 MILLIGRAM DAILY;  1-0-0-0
     Route: 048
  11. FEBUXOSTAT. [Concomitant]
     Active Substance: FEBUXOSTAT
     Dosage: 80 MILLIGRAM DAILY; 0-0-1-0
     Route: 048
  12. TAMSULOSIN [Concomitant]
     Active Substance: TAMSULOSIN
     Dosage: .4 MILLIGRAM DAILY;  1-0-0-0
     Route: 048
  13. RAMIPRIL/HYDROCHLOROTHIAZIDE [Interacting]
     Active Substance: HYDROCHLOROTHIAZIDE\RAMIPRIL
     Dosage: 1 DOSAGE FORMS DAILY; 25|5 MG, 1-0-0-0
     Route: 048
  14. NOVODIGAL MITE 0,1MG [Concomitant]
     Dosage: .1 MILLIGRAM DAILY; 1-0-0-0
     Route: 048

REACTIONS (6)
  - Electrolyte imbalance [Unknown]
  - Renal impairment [Unknown]
  - Anaemia [Unknown]
  - Contraindicated product administered [Unknown]
  - Product administration error [Unknown]
  - Labelled drug-drug interaction medication error [Unknown]

NARRATIVE: CASE EVENT DATE: 20191105
